FAERS Safety Report 8983874 (Version 1)
Quarter: 2012Q4

REPORT INFORMATION
  Report Type: Report from Study
  Country: SI (occurrence: SI)
  Receive Date: 20121224
  Receipt Date: 20121224
  Transmission Date: 20130627
  Serious: Yes (Hospitalization)
  Sender: FDA-Public Use
  Company Number: SI-ROCHE-1172663

PATIENT
  Age: 66 Year
  Sex: Male

DRUGS (5)
  1. BEVACIZUMAB [Suspect]
     Indication: COLON CANCER METASTATIC
     Route: 042
     Dates: start: 20100510, end: 20100531
  2. CAPECITABINE [Suspect]
     Indication: COLON CANCER METASTATIC
     Route: 048
     Dates: start: 20100510, end: 20100531
  3. IRINOTECAN [Concomitant]
     Indication: COLON CANCER METASTATIC
     Route: 042
     Dates: start: 20100510, end: 20100531
  4. INSULIN [Concomitant]
     Indication: TYPE 2 DIABETES MELLITUS
     Route: 065
     Dates: start: 2004
  5. CRESTOR [Concomitant]

REACTIONS (2)
  - Diarrhoea [Recovered/Resolved]
  - Gangrene [Unknown]
